FAERS Safety Report 11727660 (Version 2)
Quarter: 2015Q4

REPORT INFORMATION
  Report Type: Spontaneous
  Country: HR (occurrence: HR)
  Receive Date: 20151112
  Receipt Date: 20151214
  Transmission Date: 20160304
  Serious: Yes (Hospitalization, Other)
  Sender: FDA-Public Use
  Company Number: HR-JNJFOC-20151111125

PATIENT
  Age: 75 Year
  Sex: Female

DRUGS (2)
  1. XARELTO [Suspect]
     Active Substance: RIVAROXABAN
     Indication: ATRIAL FIBRILLATION
     Route: 048
     Dates: start: 201510
  2. XARELTO [Suspect]
     Active Substance: RIVAROXABAN
     Indication: CEREBROVASCULAR ACCIDENT PROPHYLAXIS
     Route: 048
     Dates: start: 201510

REACTIONS (18)
  - Cardiac failure [Unknown]
  - Hemiparesis [Not Recovered/Not Resolved]
  - Brain oedema [Unknown]
  - Speech disorder [Unknown]
  - Hyporeflexia [Unknown]
  - Haemorrhagic transformation stroke [Unknown]
  - Muscular weakness [Unknown]
  - Aphasia [Unknown]
  - Vomiting [Unknown]
  - Facial paresis [Unknown]
  - Extensor plantar response [Unknown]
  - Suprapubic pain [Unknown]
  - Intracranial pressure increased [Unknown]
  - Cerebrovascular accident [Unknown]
  - Heart rate irregular [Unknown]
  - Gaze palsy [Unknown]
  - Cerebral ischaemia [Unknown]
  - Computerised tomogram head abnormal [Unknown]

NARRATIVE: CASE EVENT DATE: 20151017
